FAERS Safety Report 7400283-X (Version None)
Quarter: 2011Q1

REPORT INFORMATION
  Report Type: 
  Country: None (occurrence: None)
  Receive Date: 20110330
  Receipt Date: 20110315
  Transmission Date: 20110831
  Serious: Yes (Hospitalization)
  Sender: FDA-Public Use
  Company Number: 2011MA002442

PATIENT
  Age: 37 Year
  Sex: Female

DRUGS (4)
  1. GANCICLOVIR [Concomitant]
  2. FORSCARNET [Concomitant]
  3. ACYCLOVIR [Suspect]
     Indication: HERPES SIMPLEX
     Dosage: 30 MG/KG;OD
  4. PREDNISONE [Concomitant]

REACTIONS (5)
  - INFECTION [None]
  - NEUTROPENIA [None]
  - RENAL FAILURE [None]
  - HYPONATRAEMIA [None]
  - DRUG RESISTANCE [None]
